FAERS Safety Report 7496186-5 (Version None)
Quarter: 2011Q2

REPORT INFORMATION
  Report Type: 
  Country: None (occurrence: None)
  Receive Date: 20110523
  Receipt Date: 20110511
  Transmission Date: 20111010
  Serious: Yes (Other)
  Sender: FDA-Public Use
  Company Number: PHHY2011US40806

PATIENT
  Sex: Male

DRUGS (3)
  1. ZADITOR [Suspect]
     Dosage: 5 ML, QD
  2. POLYMYXIN-B-SULFATE [Concomitant]
  3. TRIMETHOPRIM [Concomitant]

REACTIONS (2)
  - EYE SWELLING [None]
  - EXPIRED DRUG ADMINISTERED [None]
